FAERS Safety Report 8068406-X (Version None)
Quarter: 2012Q1

REPORT INFORMATION
  Report Type: 
  Country: None (occurrence: None)
  Receive Date: 20120124
  Receipt Date: 20111025
  Transmission Date: 20120608
  Serious: No
  Sender: FDA-Public Use
  Company Number: US-AMGEN-USASP2011055162

PATIENT
  Age: 82 Year
  Sex: Female

DRUGS (2)
  1. PROLIA [Suspect]
     Indication: OSTEOPOROSIS POSTMENOPAUSAL
     Dosage: 60 MG, Q6MO
     Dates: start: 20110701
  2. GLYBURIDE [Concomitant]
     Dosage: 1 MG, QD

REACTIONS (4)
  - PARAESTHESIA [None]
  - BLOOD CALCIUM INCREASED [None]
  - FALL [None]
  - CYSTITIS [None]
